FAERS Safety Report 4504207-4 (Version None)
Quarter: 2004Q4

REPORT INFORMATION
  Report Type: 
  Country: None (occurrence: None)
  Receive Date: 20041116
  Receipt Date: 20041116
  Transmission Date: 20050328
  Serious: Yes (Other)
  Sender: FDA-Public Use
  Company Number: None

PATIENT
  Age: 39 Year
  Sex: Female
  Weight: 76.2043 kg

DRUGS (2)
  1. LEXAPRO [Suspect]
     Indication: DEPRESSION
     Dosage: 10 MG ONE PO Q DAY
     Route: 048
     Dates: start: 20030909, end: 20030910
  2. LEXAPRO [Suspect]
     Indication: FIBROMYALGIA
     Dosage: 10 MG ONE PO Q DAY
     Route: 048
     Dates: start: 20030909, end: 20030910

REACTIONS (2)
  - ANXIETY [None]
  - PANIC DISORDER [None]
